FAERS Safety Report 7409830-5 (Version None)
Quarter: 2011Q2

REPORT INFORMATION
  Report Type: 
  Country: None (occurrence: None)
  Receive Date: 20110412
  Receipt Date: 20110406
  Transmission Date: 20111010
  Serious: Yes (Death)
  Sender: FDA-Public Use
  Company Number: US-ELI_LILLY_AND_COMPANY-US201102002602

PATIENT
  Sex: Male

DRUGS (3)
  1. VITAMIN B-12 [Concomitant]
  2. ALIMTA [Suspect]
  3. FOLIC ACID [Concomitant]

REACTIONS (1)
  - NEOPLASM MALIGNANT [None]
